FAERS Safety Report 5181430-X (Version None)
Quarter: 2006Q4

REPORT INFORMATION
  Report Type: 
  Country: None (occurrence: None)
  Receive Date: 20061220
  Receipt Date: 20060111
  Transmission Date: 20070319
  Serious: No
  Sender: FDA-Public Use
  Company Number: US-GLAXOSMITHKLINE-A0588745A

PATIENT
  Age: 71 Year
  Sex: Female

DRUGS (2)
  1. COMMIT [Suspect]
     Dates: start: 20051123, end: 20051127
  2. NICODERM CQ [Suspect]

REACTIONS (2)
  - BLOOD URINE PRESENT [None]
  - NICOTINE DEPENDENCE [None]
